FAERS Safety Report 5227359-X (Version None)
Quarter: 2007Q1

REPORT INFORMATION
  Report Type: 
  Country: None (occurrence: None)
  Receive Date: 20070130
  Receipt Date: 20070122
  Transmission Date: 20070707
  Serious: Yes (Death)
  Sender: FDA-Public Use
  Company Number: 230347K07USA

PATIENT
  Age: 65 Year
  Sex: Female

DRUGS (1)
  1. REBIF [Suspect]
     Indication: MULTIPLE SCLEROSIS
     Dosage: 44 MCG, 3 IN 1 WEEKS, SUBCUTANEOUS
     Route: 058
     Dates: start: 20060407, end: 20061201

REACTIONS (5)
  - ARTERIOSCLEROSIS CORONARY ARTERY [None]
  - COMPLETED SUICIDE [None]
  - CORONARY ARTERY OCCLUSION [None]
  - EMOTIONAL DISORDER [None]
  - MYOCARDIAL INFARCTION [None]
